FAERS Safety Report 5842565-9 (Version None)
Quarter: 2008Q3

REPORT INFORMATION
  Report Type: 
  Country: None (occurrence: None)
  Receive Date: 20080812
  Receipt Date: 20080801
  Transmission Date: 20090109
  Serious: Yes (Other)
  Sender: FDA-Public Use
  Company Number: US-PFIZER INC-2008064451

PATIENT
  Sex: Male
  Weight: 113.63 kg

DRUGS (5)
  1. VIAGRA [Suspect]
     Indication: ERECTILE DYSFUNCTION
  2. ALL OTHER THERAPEUTIC PRODUCTS [Concomitant]
  3. ZOCOR [Concomitant]
  4. HYDROCODONE BITARTRATE [Concomitant]
  5. LISINOPRIL [Concomitant]

REACTIONS (4)
  - BACK INJURY [None]
  - DRUG INEFFECTIVE [None]
  - MACROCYTOSIS [None]
  - SURGERY [None]
